FAERS Safety Report 4532055-8 (Version None)
Quarter: 2004Q4

REPORT INFORMATION
  Report Type: 
  Country: None (occurrence: None)
  Receive Date: 20041220
  Receipt Date: 20041210
  Transmission Date: 20050328
  Serious: Yes (Hospitalization)
  Sender: FDA-Public Use
  Company Number: FR-GLAXOSMITHKLINE-B0362118A

PATIENT
  Age: 21 Year
  Sex: Female

DRUGS (4)
  1. CLAMOXYL [Suspect]
     Route: 048
     Dates: start: 20040524, end: 20040524
  2. CHIBRO-CADRON [Concomitant]
     Indication: UVEITIS
     Route: 047
  3. MYDRIATICUM [Concomitant]
     Indication: UVEITIS
     Route: 047
  4. VOLTAREN [Concomitant]
     Indication: UVEITIS
     Route: 047

REACTIONS (5)
  - ABDOMINAL PAIN [None]
  - EYELID OEDEMA [None]
  - HYPOTENSION [None]
  - NAUSEA [None]
  - URTICARIA [None]
